FAERS Safety Report 15745688 (Version 1)
Quarter: 2018Q4

REPORT INFORMATION
  Report Type: Spontaneous
  Country: US (occurrence: US)
  Receive Date: 20181220
  Receipt Date: 20181220
  Transmission Date: 20190205
  Serious: No
  Sender: FDA-Public Use
  Company Number: US-BAYER-2018-238229

PATIENT
  Sex: Female

DRUGS (12)
  1. OMEPRAZOLE. [Concomitant]
     Active Substance: OMEPRAZOLE
  2. BETASERON [Suspect]
     Active Substance: INTERFERON BETA-1B
     Indication: MULTIPLE SCLEROSIS
     Dosage: 0.25 MG, QOD
     Route: 058
  3. BIOTIN [Concomitant]
     Active Substance: BIOTIN
  4. MULTAQ [Concomitant]
     Active Substance: DRONEDARONE
  5. PRESERVISION [Concomitant]
     Active Substance: MINERALS\VITAMINS
  6. NIACIN. [Concomitant]
     Active Substance: NIACIN
  7. OXCARBAZEPIN [Concomitant]
     Active Substance: OXCARBAZEPINE
  8. MODAFINIL. [Concomitant]
     Active Substance: MODAFINIL
  9. STOOL SOFTENER (DOCUSATE) [Concomitant]
     Active Substance: DOCUSATE
  10. OXYBUTYNIN. [Concomitant]
     Active Substance: OXYBUTYNIN CHLORIDE
  11. FISH OIL [Concomitant]
     Active Substance: FISH OIL
  12. ELIQUIS [Concomitant]
     Active Substance: APIXABAN

REACTIONS (4)
  - Paramnesia [None]
  - Spinal column stenosis [None]
  - Musculoskeletal pain [None]
  - Muscular weakness [None]
